FAERS Safety Report 4984113-1 (Version None)
Quarter: 2006Q1

REPORT INFORMATION
  Report Type: 
  Country: None (occurrence: None)
  Receive Date: 20060303
  Receipt Date: 20051230
  Transmission Date: 20060701
  Serious: Yes (Hospitalization)
  Sender: FDA-Public Use
  Company Number: 05-0166TG

PATIENT
  Age: 76 Year
  Sex: Male

DRUGS (4)
  1. FENOFIBRATE [Suspect]
     Indication: HYPERCHOLESTEROLAEMIA
  2. CARDURA [Concomitant]
  3. ASPIRIN [Concomitant]
  4. PLAVIX [Concomitant]

REACTIONS (2)
  - ANGIOPATHY [None]
  - CEREBROVASCULAR ACCIDENT [None]
